FAERS Safety Report 6376829-X (Version None)
Quarter: 2009Q3

REPORT INFORMATION
  Report Type: 
  Country: None (occurrence: None)
  Receive Date: 20090925
  Receipt Date: 20090924
  Transmission Date: 20100115
  Serious: Yes (Other)
  Sender: FDA-Public Use
  Company Number: AR-BRISTOL-MYERS SQUIBB COMPANY-14791941

PATIENT
  Age: 60 Year
  Sex: Female

DRUGS (1)
  1. AVAPRO [Suspect]

REACTIONS (1)
  - LEUKAEMIA [None]
